FAERS Safety Report 6431240-8 (Version None)
Quarter: 2009Q4

REPORT INFORMATION
  Report Type: 
  Country: None (occurrence: None)
  Receive Date: 20091106
  Receipt Date: 20091103
  Transmission Date: 20100525
  Serious: Yes (Hospitalization)
  Sender: FDA-Public Use
  Company Number: DE-PFIZER INC-2009292244

PATIENT
  Age: 38 Year
  Sex: Male
  Weight: 90 kg

DRUGS (9)
  1. AMLODIPINE BESYLATE [Suspect]
  2. LYRICA [Suspect]
  3. DILTIAZEM [Suspect]
  4. LORAZEPAM [Suspect]
  5. CO-DIOVANE [Suspect]
  6. FLUOXETINE [Suspect]
  7. PROMETHAZINE [Suspect]
  8. TIMONIL [Suspect]
  9. TRANXILIUM [Suspect]

REACTIONS (3)
  - GASTROINTESTINAL SOUNDS ABNORMAL [None]
  - SOMNOLENCE [None]
  - SUICIDE ATTEMPT [None]
